FAERS Safety Report 7017958-7 (Version None)
Quarter: 2010Q3

REPORT INFORMATION
  Report Type: 
  Country: None (occurrence: None)
  Receive Date: 20100928
  Receipt Date: 20100921
  Transmission Date: 20110219
  Serious: Yes (Death, Other)
  Sender: FDA-Public Use
  Company Number: GB-CELGENEUS-167-20785-10092240

PATIENT
  Age: 86 Year
  Sex: Male

DRUGS (8)
  1. THALIDOMIDE [Suspect]
     Indication: HYPERAMMONAEMIC ENCEPHALOPATHY
     Route: 048
  2. THALIDOMIDE [Suspect]
  3. CYCLOPHOSPHAMIDE [Concomitant]
     Indication: HYPERAMMONAEMIC ENCEPHALOPATHY
     Route: 065
  4. CYCLOPHOSPHAMIDE [Concomitant]
  5. L-ORNITHINE-L-ASPARTATE [Concomitant]
     Indication: HYPERAMMONAEMIC ENCEPHALOPATHY
     Route: 048
  6. L-ORNITHINE-L-ASPARTATE [Concomitant]
  7. DEXAMETHASONE [Concomitant]
     Indication: HYPERAMMONAEMIC ENCEPHALOPATHY
     Route: 065
  8. DEXAMETHASONE [Concomitant]

REACTIONS (3)
  - AZOTAEMIA [None]
  - CARDIAC ARREST [None]
  - HYPERAMMONAEMIC ENCEPHALOPATHY [None]
